FAERS Safety Report 8065813-6 (Version None)
Quarter: 2012Q1

REPORT INFORMATION
  Report Type: 
  Country: None (occurrence: None)
  Receive Date: 20120124
  Receipt Date: 20120116
  Transmission Date: 20120608
  Serious: Yes (Hospitalization)
  Sender: FDA-Public Use
  Company Number: CHPA2012US001404

PATIENT
  Age: 71 Year
  Sex: Female

DRUGS (6)
  1. ACETAMINOPHEN [Concomitant]
     Indication: PAIN
     Dosage: UNK DF, PRN
     Route: 048
  2. PRILOSEC [Concomitant]
     Dosage: 40 MG, QD
     Route: 048
     Dates: start: 20120101
  3. GAS-X EXTSTR CHEWABLE TABS CHERRY CREME [Suspect]
     Dosage: 1 DF, BID
     Route: 048
     Dates: end: 20120108
  4. PRILOSEC [Concomitant]
     Indication: GASTROOESOPHAGEAL REFLUX DISEASE
     Dosage: 20 MG, QD
     Route: 048
     Dates: end: 20120101
  5. ACETYLSALICYLIC ACID SRT [Concomitant]
     Dosage: 81 MG, QD
     Route: 048
  6. GAS-X EXTSTR CHEWABLE TABS CHERRY CREME [Suspect]
     Indication: FLATULENCE
     Dosage: OFF AND ON
     Route: 048
     Dates: start: 20111001

REACTIONS (7)
  - GASTROOESOPHAGEAL REFLUX DISEASE [None]
  - DIZZINESS [None]
  - ASTHENIA [None]
  - FEELING ABNORMAL [None]
  - GAIT DISTURBANCE [None]
  - CONCOMITANT DISEASE AGGRAVATED [None]
  - CHEST PAIN [None]
